FAERS Safety Report 7270157-6 (Version None)
Quarter: 2011Q1

REPORT INFORMATION
  Report Type: 
  Country: None (occurrence: None)
  Receive Date: 20110125
  Receipt Date: 20110125
  Transmission Date: 20110831
  Serious: No
  Sender: FDA-Public Use
  Company Number: None

PATIENT
  Age: 47 Year
  Sex: Female
  Weight: 62.5964 kg

DRUGS (1)
  1. BOTOX [Suspect]
     Indication: MIGRAINE
     Dosage: IM 31 INJECTIONS ONLY
     Route: 030
     Dates: start: 20101208, end: 20101208

REACTIONS (7)
  - MUSCULOSKELETAL PAIN [None]
  - NECK PAIN [None]
  - MUSCLE DISORDER [None]
  - DEPRESSION [None]
  - HEADACHE [None]
  - JOINT RANGE OF MOTION DECREASED [None]
  - IMPAIRED WORK ABILITY [None]
